FAERS Safety Report 8610693-0 (Version None)
Quarter: 2012Q3

REPORT INFORMATION
  Report Type: 
  Country: None (occurrence: None)
  Receive Date: 20120822
  Receipt Date: 20120814
  Transmission Date: 20120928
  Serious: Yes (Hospitalization)
  Sender: FDA-Public Use
  Company Number: US-NOVOPROD-353642

PATIENT
  Age: 12 Year
  Sex: Female
  Weight: 58.957 kg

DRUGS (5)
  1. NORDITROPIN FLEXPRO [Suspect]
     Indication: GROWTH HORMONE DEFICIENCY
     Dosage: 2.5 MG, QD
     Route: 058
     Dates: start: 20111101, end: 20120301
  2. SYNTHROID [Concomitant]
     Indication: HYPOPITUITARISM
     Dosage: 75 MCG DAILY
     Route: 048
  3. NORDITROPIN FLEXPRO [Suspect]
     Dosage: 1.7 MG, QD
     Route: 058
     Dates: start: 20120301
  4. LAMICTAL [Concomitant]
     Indication: PRODUCT USED FOR UNKNOWN INDICATION
     Dosage: 100 MG, QD
     Route: 048
  5. DDAVP [Concomitant]
     Indication: PRODUCT USED FOR UNKNOWN INDICATION
     Dosage: 0.1 MG, Q 8 HOURS
     Route: 048

REACTIONS (1)
  - SHUNT MALFUNCTION [None]
